FAERS Safety Report 8935185 (Version 4)
Quarter: 2013Q2

REPORT INFORMATION
  Report Type: Report from Study
  Country: JP (occurrence: JP)
  Receive Date: 20121129
  Receipt Date: 20130408
  Transmission Date: 20140414
  Serious: Yes (Death, Hospitalization)
  Sender: FDA-Public Use
  Company Number: JP-PFIZER INC-2012267041

PATIENT
  Age: 74 Year
  Sex: Male
  Weight: 50.1 kg

DRUGS (13)
  1. CRIZOTINIB [Suspect]
     Indication: NON-SMALL CELL LUNG CANCER
     Dosage: 500 MG, DAILY
     Route: 048
     Dates: start: 20120823, end: 20120910
  2. CRIZOTINIB [Suspect]
     Dosage: 200 MG, 2X/DAY
     Dates: start: 20120911, end: 20121010
  3. LAC B [Concomitant]
     Dosage: 1 G, 3X/DAY
     Route: 048
     Dates: end: 20121010
  4. GRAMALIL [Concomitant]
     Dosage: 25 MG, 1X/DAY
     Route: 048
     Dates: end: 20121010
  5. NORVASC [Concomitant]
     Dosage: 25 MG, 1X/DAY
     Route: 048
     Dates: end: 20121010
  6. ALFAROL [Concomitant]
     Dosage: 1 UG, 1X/DAY
     Route: 048
     Dates: end: 20121010
  7. PROSTAL [Concomitant]
     Dosage: 50 MG, 1X/DAY
     Route: 048
     Dates: end: 20121013
  8. DENOSUMAB [Concomitant]
     Dosage: 120 MG, MONTHLY
     Route: 058
     Dates: end: 20120928
  9. ASPARTATE CALCIUM [Concomitant]
     Dosage: 400 MG, 3X/DAY
     Route: 048
     Dates: end: 20121010
  10. WARFARIN [Concomitant]
     Dosage: 1 MG, 1X/DAY
     Route: 048
     Dates: end: 20121013
  11. URIEF [Concomitant]
     Dosage: 4 MG, 2X/DAY
     Route: 048
     Dates: end: 20121013
  12. THYRADIN [Concomitant]
     Dosage: 25 UG, 1X/DAY
     Route: 048
     Dates: end: 20121015
  13. RINDERON [Concomitant]
     Dosage: 1 MG, 1X/DAY
     Route: 048
     Dates: end: 20121013

REACTIONS (2)
  - Malaise [Recovering/Resolving]
  - Pneumonia aspiration [Fatal]
